FAERS Safety Report 14223175 (Version 4)
Quarter: 2018Q1

REPORT INFORMATION
  Report Type: Report from Study
  Country: US (occurrence: US)
  Receive Date: 20171124
  Receipt Date: 20180212
  Transmission Date: 20180508
  Serious: Yes (Hospitalization)
  Sender: FDA-Public Use
  Company Number: US-ROCHE-2024684

PATIENT
  Age: 51 Year
  Sex: Male

DRUGS (29)
  1. BLINDED TRILACICLIB [Suspect]
     Active Substance: TRILACICLIB
     Dosage: START TIME OF INFUSION 16:30, END TIME 17:00
     Route: 042
     Dates: start: 20171013
  2. CARBOPLATIN. [Suspect]
     Active Substance: CARBOPLATIN
     Indication: SMALL CELL LUNG CANCER
     Dosage: START TIME OF INFUSION 13:05, END TIME 14:05 (650 MG)?TARGET AUC = 5 MILLIGRAMS PER MILLILITER PER M
     Route: 042
     Dates: start: 20170921
  3. ETOPOSIDE. [Suspect]
     Active Substance: ETOPOSIDE
     Dosage: DOSE: 168, START TIME OF INFUSION 17:10, END TIME 18:10
     Route: 042
     Dates: start: 20171013
  4. SENNOSIDES. [Concomitant]
     Active Substance: SENNOSIDES
     Indication: CONSTIPATION
     Route: 048
     Dates: start: 20170919
  5. MORPHINE [Concomitant]
     Active Substance: MORPHINE
     Route: 042
     Dates: start: 20171103, end: 20171103
  6. CARBOPLATIN. [Suspect]
     Active Substance: CARBOPLATIN
     Dosage: START TIME OF INFUSION 15:08, END TIME 16:08
     Route: 042
     Dates: start: 20171011
  7. CARBOPLATIN. [Suspect]
     Active Substance: CARBOPLATIN
     Dosage: START TIME OF INFUSION 14:30, END TIME 15:30
     Route: 042
     Dates: start: 20171101
  8. BLINDED TRILACICLIB [Suspect]
     Active Substance: TRILACICLIB
     Indication: BONE MARROW FAILURE
     Dosage: START TIME OF INFUSION 12:20, END TIME 12:50
     Route: 042
     Dates: start: 20170921
  9. LORAZEPAM. [Concomitant]
     Active Substance: LORAZEPAM
     Route: 042
     Dates: start: 20171101, end: 20171101
  10. MORPHINE [Concomitant]
     Active Substance: MORPHINE
     Route: 042
     Dates: start: 20171127, end: 20171127
  11. MORPHINE [Concomitant]
     Active Substance: MORPHINE
     Route: 042
     Dates: start: 20171102, end: 20171102
  12. MORPHINE [Concomitant]
     Active Substance: MORPHINE
     Route: 042
     Dates: start: 20171012, end: 20171012
  13. MIRALAX [Concomitant]
     Active Substance: POLYETHYLENE GLYCOL 3350
     Indication: CONSTIPATION
     Route: 048
     Dates: start: 20170919
  14. MORPHINE [Concomitant]
     Active Substance: MORPHINE
     Route: 042
     Dates: start: 20171101, end: 20171101
  15. ATEZOLIZUMAB. [Suspect]
     Active Substance: ATEZOLIZUMAB
     Indication: SMALL CELL LUNG CANCER
     Dosage: START TIME OF INFUSION 15:55, END TIME 16:55
     Route: 042
     Dates: start: 20170921
  16. ATEZOLIZUMAB. [Suspect]
     Active Substance: ATEZOLIZUMAB
     Route: 042
     Dates: start: 20171101
  17. ETOPOSIDE. [Suspect]
     Active Substance: ETOPOSIDE
     Indication: SMALL CELL LUNG CANCER
     Dosage: DOSE: 177MG (100 MG/M2), START TIME OF INFUSION 14:20, END TIME 15:20?100 MG/M2 WILL BE ADMINISTERED
     Route: 042
     Dates: start: 20170921
  18. GABAPENTIN. [Concomitant]
     Active Substance: GABAPENTIN
     Indication: BACK PAIN
     Route: 048
     Dates: start: 20170906
  19. IBUPROFEN. [Concomitant]
     Active Substance: IBUPROFEN
     Indication: BACK PAIN
     Route: 048
     Dates: start: 20170821
  20. COLACE [Concomitant]
     Active Substance: DOCUSATE SODIUM
     Indication: CONSTIPATION
     Route: 048
     Dates: start: 20170919
  21. ATEZOLIZUMAB. [Suspect]
     Active Substance: ATEZOLIZUMAB
     Dosage: START TIME OF INFUSION 17:48, END TIME 18:17
     Route: 042
     Dates: start: 20171011
  22. CLARITIN (UNITED STATES) [Concomitant]
     Indication: SEASONAL ALLERGY
     Route: 048
     Dates: start: 20170530
  23. BLINDED TRILACICLIB [Suspect]
     Active Substance: TRILACICLIB
     Dosage: START TIME OF INFUSION 15:45, END TIME 16:15
     Route: 042
     Dates: start: 20171103
  24. ETOPOSIDE. [Suspect]
     Active Substance: ETOPOSIDE
     Dosage: DOSE: 168, START TIME OF INFUSION 16:25, END TIME 17:30
     Route: 042
     Dates: start: 20171103
  25. ERGOCALCIFEROL. [Concomitant]
     Active Substance: ERGOCALCIFEROL
     Indication: VITAMIN D DEFICIENCY
     Route: 048
     Dates: start: 20170530
  26. NYSTATIN. [Concomitant]
     Active Substance: NYSTATIN
     Route: 048
     Dates: start: 20170620
  27. LORAZEPAM. [Concomitant]
     Active Substance: LORAZEPAM
     Indication: ANXIETY
     Dosage: 2 MG/ML
     Route: 030
     Dates: start: 20170919, end: 20170919
  28. ALLOPURINOL. [Concomitant]
     Active Substance: ALLOPURINOL
     Route: 048
     Dates: start: 20170920
  29. MORPHINE [Concomitant]
     Active Substance: MORPHINE
     Indication: BACK PAIN
     Route: 042
     Dates: start: 20171011, end: 20171011

REACTIONS (1)
  - Thrombosis [Recovered/Resolved]

NARRATIVE: CASE EVENT DATE: 20171108
